FAERS Safety Report 8254894-2 (Version None)
Quarter: 2012Q2

REPORT INFORMATION
  Report Type: 
  Country: None (occurrence: None)
  Receive Date: 20120403
  Receipt Date: 20120329
  Transmission Date: 20120825
  Serious: Yes (Hospitalization)
  Sender: FDA-Public Use
  Company Number: JP-SANOFI-AVENTIS-2012SA019950

PATIENT
  Age: 88 Year
  Sex: Female
  Weight: 40 kg

DRUGS (4)
  1. LASIX [Suspect]
     Indication: NEUROGENIC BLADDER
     Route: 065
  2. DISTIGMINE BROMIDE [Suspect]
     Indication: NEUROGENIC BLADDER
     Route: 048
     Dates: start: 20100101
  3. GOREI-SAN [Concomitant]
     Indication: NEUROGENIC BLADDER
  4. AMLODIPINE [Concomitant]
     Indication: HYPERTENSION

REACTIONS (9)
  - VOMITING [None]
  - CHOLINERGIC SYNDROME [None]
  - DYSPNOEA [None]
  - BRADYCARDIA [None]
  - CONVULSION [None]
  - MIOSIS [None]
  - DIARRHOEA [None]
  - BLOOD CHOLINESTERASE DECREASED [None]
  - ALTERED STATE OF CONSCIOUSNESS [None]
